FAERS Safety Report 8071576-0 (Version None)
Quarter: 2012Q1

REPORT INFORMATION
  Report Type: 
  Country: None (occurrence: None)
  Receive Date: 20120125
  Receipt Date: 20120120
  Transmission Date: 20120608
  Serious: Yes (Disabling, Other)
  Sender: FDA-Public Use
  Company Number: US-PFIZER INC-2012017345

PATIENT
  Sex: Female
  Weight: 49.9 kg

DRUGS (6)
  1. LAMICTAL [Interacting]
     Indication: EPILEPSY
     Dosage: 150 MG, 2X/DAY
     Route: 048
  2. LEXAPRO [Interacting]
     Indication: DEPRESSION
     Dosage: 20 MG, DAILY
  3. TOPAMAX [Interacting]
     Indication: EPILEPSY
     Dosage: UNK,2X/DAY
     Route: 048
  4. PROVERA [Suspect]
     Indication: MENOPAUSE
     Dosage: 10 MG, DAILY
     Route: 048
  5. LACOSAMIDE [Interacting]
     Indication: EPILEPSY
     Dosage: 100 MG, 4X/DAY
  6. PREMARIN [Interacting]
     Indication: MENOPAUSE
     Dosage: 0.625 MG, DAILY
     Route: 048

REACTIONS (6)
  - EPILEPSY [None]
  - BALANCE DISORDER [None]
  - DRUG INEFFECTIVE [None]
  - SOMNOLENCE [None]
  - TREMOR [None]
  - DRUG INTERACTION [None]
